FAERS Safety Report 9255440 (Version 1)
Quarter: 2013Q1

REPORT INFORMATION
  Report Type: Spontaneous
  Country: US (occurrence: None)
  Receive Date: 20121212
  Receipt Date: 20121212
  Transmission Date: 20140127
  Serious: No
  Sender: FDA-Public Use
  Company Number: 1209USA010501

PATIENT
  Age: 37 Year
  Sex: Female

DRUGS (2)
  1. VICTRELIS [Suspect]
     Indication: HEPATITIS
     Dates: start: 20120824
  2. REBETOL [Suspect]
     Indication: HEPATITIS
     Dates: start: 20120720

REACTIONS (2)
  - Pain in extremity [None]
  - Nasopharyngitis [None]
